FAERS Safety Report 19726619 (Version 1)
Quarter: 2021Q3

REPORT INFORMATION
  Report Type: Spontaneous
  Country: DE (occurrence: DE)
  Receive Date: 20210820
  Receipt Date: 20210820
  Transmission Date: 20211014
  Serious: Yes (Other)
  Sender: FDA-Public Use
  Company Number: DE-SAMSUNG BIOEPIS-SB-2021-19938

PATIENT
  Sex: Female

DRUGS (3)
  1. IBU [Concomitant]
     Active Substance: IBUPROFEN
     Indication: PRODUCT USED FOR UNKNOWN INDICATION
     Route: 065
  2. METHOTREXATE. [Concomitant]
     Active Substance: METHOTREXATE
     Indication: ANKYLOSING SPONDYLITIS
     Dosage: UNKNOWN
     Route: 065
  3. IMRALDI [Suspect]
     Active Substance: ADALIMUMAB
     Indication: ANKYLOSING SPONDYLITIS
     Dosage: FOR ABOUT 1 YEAR
     Route: 058

REACTIONS (5)
  - Uveitis [Unknown]
  - Peripheral swelling [Unknown]
  - Joint swelling [Unknown]
  - Breast cancer female [Unknown]
  - Cystitis [Unknown]
